FAERS Safety Report 10879493 (Version 1)
Quarter: 2015Q1

REPORT INFORMATION
  Report Type: Spontaneous
  Country: US (occurrence: US)
  Receive Date: 20150302
  Receipt Date: 20150302
  Transmission Date: 20150721
  Serious: Yes (Hospitalization, Other)
  Sender: FDA-Public Use
  Company Number: US-TEVA-543758USA

PATIENT
  Age: 10 Year
  Sex: Male

DRUGS (2)
  1. VANCOMYCIN [Concomitant]
     Active Substance: VANCOMYCIN
     Route: 065
  2. CEFTRIAXONE. [Suspect]
     Active Substance: CEFTRIAXONE
     Route: 065

REACTIONS (8)
  - Cholecystitis acute [Unknown]
  - White blood cell count decreased [Unknown]
  - Osteomyelitis salmonella [Recovering/Resolving]
  - Joint effusion [Recovering/Resolving]
  - Cholelithiasis [Unknown]
  - Platelet count decreased [Unknown]
  - Pyrexia [Unknown]
  - Osteomyelitis [Recovered/Resolved]
